FAERS Safety Report 8439079 (Version 2)
Quarter: 2013Q2

REPORT INFORMATION
  Report Type: Spontaneous
  Country: US (occurrence: None)
  Receive Date: 20120104
  Receipt Date: 20120508
  Transmission Date: 20140414
  Serious: Yes (Other)
  Sender: FDA-Public Use
  Company Number: 2011HGS-002950

PATIENT
  Age: 37 Year
  Sex: Female
  Weight: 58.06 kg

DRUGS (6)
  1. BENLYSTA [Suspect]
     Indication: SYSTEMIC LUPUS ERYTHEMATOSUS
     Route: 041
     Dates: start: 20111107
  2. PLAQUENIL (HYDROXYCHLOROQUINE SULFATE) (HYDROXYCHLOROQUINE SULFATE) [Concomitant]
  3. ZANTAC [Concomitant]
  4. VITAMIN C (ASCORBIC ACID) (ASCORBIC ACID) [Concomitant]
  5. OMEGA-3 (OMEGA-3 TRIGLYCERIDES) (OMEGA-3 TRIGLYCERIDES) [Concomitant]
  6. DURAGESIC (FENTANYL) (FENTANYL) [Concomitant]

REACTIONS (7)
  - PAIN [None]
  - RASH [None]
  - FLUSHING [None]
  - SENSATION OF HEAVINESS [None]
  - Fatigue [None]
  - Nausea [None]
  - Hypersensitivity [None]
